FAERS Safety Report 4291402-5 (Version None)
Quarter: 2004Q1

REPORT INFORMATION
  Report Type: 
  Country: None (occurrence: None)
  Receive Date: 20040126
  Receipt Date: 20031104
  Transmission Date: 20041129
  Serious: No
  Sender: FDA-Public Use
  Company Number: USA031051194

PATIENT
  Age: 63 Year
  Sex: Female
  Weight: 63 kg

DRUGS (2)
  1. FORTEO [Suspect]
     Dates: start: 20031023, end: 20031023
  2. ESTROGEN NOS [Concomitant]

REACTIONS (1)
  - INJECTION SITE ERYTHEMA [None]
